FAERS Safety Report 9718444 (Version 1)
Quarter: 2013Q4

REPORT INFORMATION
  Report Type: Not Available
  Country: US (occurrence: US)
  Receive Date: 20131125
  Receipt Date: 20131125
  Transmission Date: 20140711
  Serious: No
  Sender: FDA-Public Use
  Company Number: US-VIVUS-2013V1000569

PATIENT
  Age: 52 Year
  Sex: Male
  Weight: 90.35 kg

DRUGS (6)
  1. QSYMIA 7.5MG/46MG [Suspect]
     Indication: WEIGHT DECREASED
     Route: 048
     Dates: start: 20130717
  2. QSYMIA 3.75MG/23MG [Suspect]
     Indication: WEIGHT DECREASED
     Route: 048
     Dates: start: 20130703, end: 20130716
  3. ARMOUR THYROID [Concomitant]
     Indication: THYROIDITIS
     Dosage: STARTED SEVERAL YEARS AGO
     Route: 048
  4. TESTOSTERONE [Concomitant]
     Indication: HORMONE REPLACEMENT THERAPY
     Dosage: STARTED 2 YEARS AGO
     Route: 048
     Dates: start: 2011
  5. INSULIN (REGULAR) [Concomitant]
     Indication: TYPE 1 DIABETES MELLITUS
     Dosage: SLIDING SCALE, STARTED 32 YEARS AGO
     Route: 058
     Dates: start: 1981
  6. INSULIN (LANTUS) [Concomitant]
     Indication: TYPE 1 DIABETES MELLITUS
     Dosage: STARTED 32 YEARS AGO
     Route: 058
     Dates: start: 1981

REACTIONS (4)
  - Intraocular pressure increased [Recovered/Resolved]
  - Food craving [Not Recovered/Not Resolved]
  - Insomnia [Recovered/Resolved]
  - Headache [Recovered/Resolved]
